FAERS Safety Report 13549693 (Version 1)
Quarter: 2017Q2

REPORT INFORMATION
  Report Type: Spontaneous
  Country: US (occurrence: US)
  Receive Date: 20170515
  Receipt Date: 20170515
  Transmission Date: 20170830
  Serious: No
  Sender: FDA-Public Use
  Company Number: None

PATIENT
  Age: 62 Year
  Sex: Female

DRUGS (1)
  1. SENSIPAR [Suspect]
     Active Substance: CINACALCET HYDROCHLORIDE
     Indication: MALAISE
     Route: 048
     Dates: start: 20170419, end: 20170503

REACTIONS (2)
  - Abdominal pain upper [None]
  - Therapy cessation [None]

NARRATIVE: CASE EVENT DATE: 20170503
